FAERS Safety Report 5043531-6 (Version None)
Quarter: 2006Q2

REPORT INFORMATION
  Report Type: 
  Country: None (occurrence: None)
  Receive Date: 20060601
  Receipt Date: 20060115
  Transmission Date: 20061013
  Serious: No
  Sender: FDA-Public Use
  Company Number: 2006PV007060

PATIENT
  Age: 56 Year
  Sex: Male
  Weight: 83.9154 kg

DRUGS (4)
  1. BYETTA [Suspect]
     Indication: DIABETES MELLITUS NON-INSULIN-DEPENDENT
     Dosage: 5 MCG; BID; SC
     Route: 058
     Dates: start: 20060113
  2. GLYSET [Concomitant]
  3. ALTACE [Concomitant]
  4. NITROGLYCERIN ^PHARMACIA + UPJOHN [Concomitant]

REACTIONS (5)
  - CHEST PAIN [None]
  - FLUSHING [None]
  - INJECTION SITE HAEMORRHAGE [None]
  - NAUSEA [None]
  - VISION BLURRED [None]
